FAERS Safety Report 19131251 (Version 4)
Quarter: 2021Q2

REPORT INFORMATION
  Report Type: Spontaneous
  Country: US (occurrence: US)
  Receive Date: 20210414
  Receipt Date: 20210623
  Transmission Date: 20210717
  Serious: Yes (Other)
  Sender: FDA-Public Use
  Company Number: US-GLOBAL BLOOD THERAPEUTICS INC-US-GBT-21-01088

PATIENT
  Age: 52 Year
  Sex: Female

DRUGS (1)
  1. OXBRYTA [Suspect]
     Active Substance: VOXELOTOR
     Indication: SICKLE CELL DISEASE
     Route: 048
     Dates: start: 20201001, end: 202101

REACTIONS (7)
  - Cardiac arrest [Not Recovered/Not Resolved]
  - Haemoglobin abnormal [Unknown]
  - Brain death [Not Recovered/Not Resolved]
  - Intentional product misuse [Unknown]
  - Confusional state [Unknown]
  - Blood count abnormal [Recovering/Resolving]
  - Biopsy bone marrow abnormal [Recovering/Resolving]

NARRATIVE: CASE EVENT DATE: 20201001
